FAERS Safety Report 7567855 (Version 2)
Quarter: 2012Q4

REPORT INFORMATION
  Report Type: Spontaneous
  Country: SE (occurrence: None)
  Receive Date: 20100820
  Receipt Date: 20120928
  Transmission Date: 20130627
  Serious: Yes (Death, Hospitalization)
  Sender: FDA-Public Use
  Company Number: DSA_43705_2010

PATIENT
  Age: 72 Year
  Sex: Male

DRUGS (1)
  1. RENITEC [Suspect]
     Indication: PRODUCT USED FOR UNKNOWN INDICATION
     Route: 048
     Dates: start: 20091220, end: 20091225

REACTIONS (5)
  - Angioedema [None]
  - Ventricular tachycardia [None]
  - Cardiac arrest [None]
  - Obstructive airways disorder [None]
  - Brain injury [None]
